FAERS Safety Report 18228417 (Version 2)
Quarter: 2020Q4

REPORT INFORMATION
  Report Type: Report from Study
  Country: JP (occurrence: JP)
  Receive Date: 20200903
  Receipt Date: 20201001
  Transmission Date: 20210113
  Serious: Yes (Death, Life-Threatening, Hospitalization)
  Sender: FDA-Public Use
  Company Number: JP-GILEAD-2020-0456863

PATIENT
  Age: 6 Decade
  Sex: Male
  Weight: 62 kg

DRUGS (8)
  1. SOFOSBUVIR W/VELPATASVIR [Suspect]
     Active Substance: SOFOSBUVIR\VELPATASVIR
     Indication: HEPATIC CIRRHOSIS
  2. SPIRONOLACTONE. [Concomitant]
     Active Substance: SPIRONOLACTONE
     Indication: HEPATIC CIRRHOSIS
     Route: 048
  3. LAGNOS [Concomitant]
     Indication: HEPATIC CIRRHOSIS
     Route: 048
  4. KAYWAN [Concomitant]
     Indication: HEPATIC CIRRHOSIS
     Route: 048
  5. PARIET [Concomitant]
     Active Substance: RABEPRAZOLE SODIUM
     Indication: DISEASE COMPLICATION
     Route: 048
  6. RIFXIMA [Concomitant]
     Active Substance: RIFAXIMIN
     Indication: HEPATIC CIRRHOSIS
     Route: 048
  7. SOFOSBUVIR W/VELPATASVIR [Suspect]
     Active Substance: SOFOSBUVIR\VELPATASVIR
     Indication: HEPATITIS C
     Dosage: 1 DOSAGE FORM, QD
     Route: 048
     Dates: start: 20190311, end: 20190602
  8. AZOSEMIDE [Concomitant]
     Active Substance: AZOSEMIDE
     Indication: HEPATIC CIRRHOSIS
     Route: 048

REACTIONS (4)
  - Hepatic failure [Fatal]
  - Ascites [Recovered/Resolved]
  - Blood bilirubin increased [Not Recovered/Not Resolved]
  - Renal failure [Fatal]

NARRATIVE: CASE EVENT DATE: 20191111
